FAERS Safety Report 19902089 (Version 1)
Quarter: 2021Q3

REPORT INFORMATION
  Report Type: Spontaneous
  Country: BE (occurrence: BE)
  Receive Date: 20210930
  Receipt Date: 20210930
  Transmission Date: 20211014
  Serious: Yes (Hospitalization)
  Sender: FDA-Public Use
  Company Number: BE-TEVA-2021-BE-1958819

PATIENT
  Age: 28 Year
  Sex: Female

DRUGS (3)
  1. SODIUM CHLORIDE. [Concomitant]
     Active Substance: SODIUM CHLORIDE
     Route: 042
  2. PARACETAMOL [Concomitant]
     Active Substance: ACETAMINOPHEN
  3. EMTHEXATE (METHOTREXATE) [Suspect]
     Active Substance: METHOTREXATE
     Indication: ECTOPIC PREGNANCY
     Dosage: 1X, 1 DF
     Route: 030
     Dates: start: 20210819, end: 20210819

REACTIONS (5)
  - Hypotension [Recovered/Resolved]
  - Angina pectoris [Recovered/Resolved]
  - Presyncope [Recovered/Resolved]
  - Tachycardia [Recovered/Resolved]
  - Nausea [Recovered/Resolved]

NARRATIVE: CASE EVENT DATE: 20210819
